APPROVED DRUG PRODUCT: MEMANTINE HYDROCHLORIDE
Active Ingredient: MEMANTINE HYDROCHLORIDE
Strength: 10MG
Dosage Form/Route: TABLET;ORAL
Application: A090051 | Product #002 | TE Code: AB
Applicant: LUPIN LTD
Approved: Apr 10, 2015 | RLD: No | RS: No | Type: RX